FAERS Safety Report 7034035-X (Version None)
Quarter: 2010Q4

REPORT INFORMATION
  Report Type: 
  Country: None (occurrence: None)
  Receive Date: 20101007
  Receipt Date: 20101002
  Transmission Date: 20110411
  Serious: Yes (Life-Threatening, Hospitalization)
  Sender: FDA-Public Use
  Company Number: PHHY2010AT65237

PATIENT
  Sex: Female

DRUGS (19)
  1. TRILEPTAL [Suspect]
     Dosage: 300 MG
     Dates: start: 20100414
  2. TRILEPTAL [Suspect]
     Dosage: 600 MG
     Dates: start: 20100415
  3. TRILEPTAL [Suspect]
     Dosage: 900 MG
     Dates: start: 20100418
  4. VENLAFAXINE HCL [Suspect]
     Dosage: 225 MG DAILY
  5. VENLAFAXINE HCL [Suspect]
     Dosage: 300 MG DAILY
  6. TRAZODONE HCL [Concomitant]
     Dosage: 150 MG
  7. TRAZODONE HCL [Concomitant]
     Dosage: UNK
     Dates: start: 20100415
  8. MESALAZINE [Concomitant]
     Dosage: 3 GM
  9. PANTOPRAZOLE [Concomitant]
     Dosage: 40 MG
  10. PANTOPRAZOLE [Concomitant]
     Dosage: 80 MG
     Dates: start: 20100415
  11. ZOLPIDEM [Concomitant]
     Dosage: 20 GM
  12. ZOLPIDEM [Concomitant]
     Dosage: 15 GM
  13. ZOLPIDEM [Concomitant]
     Dosage: 10 GM
  14. VALSARTAN/HYDROCHLOORTHIAZIDE [Concomitant]
     Dosage: 160/25
     Dates: end: 20100421
  15. BISOPROLOL [Concomitant]
     Dosage: 2.5  MG
     Dates: start: 20100411
  16. CALCIUM CARBONATE [Concomitant]
  17. FENATYL [Concomitant]
     Dosage: 75 ?G
  18. OXAZEPAM [Concomitant]
     Dosage: 300 MG
     Dates: start: 20100414
  19. OXAZEPAM [Concomitant]
     Dosage: 400 MG
     Dates: start: 20100414

REACTIONS (5)
  - ALCOHOL WITHDRAWAL SYNDROME [None]
  - HEADACHE [None]
  - HYPONATRAEMIA [None]
  - MOANING [None]
  - VOMITING [None]
